FAERS Safety Report 6979384-6 (Version None)
Quarter: 2010Q3

REPORT INFORMATION
  Report Type: 
  Country: None (occurrence: None)
  Receive Date: 20100910
  Receipt Date: 20100910
  Transmission Date: 20110219
  Serious: Yes (Life-Threatening, Hospitalization)
  Sender: FDA-Public Use
  Company Number: None

PATIENT
  Sex: Female
  Weight: 73.0291 kg

DRUGS (1)
  1. ALENDRONATE SODIUM [Suspect]
     Dosage: 70 MG - 4WKS 4 WEEKS MOUTH
     Route: 048
     Dates: start: 20100705, end: 20100726

REACTIONS (3)
  - APHAGIA [None]
  - OESOPHAGEAL DISCOMFORT [None]
  - PRODUCT SUBSTITUTION ISSUE [None]
